FAERS Safety Report 5087978-0 (Version None)
Quarter: 2006Q3

REPORT INFORMATION
  Report Type: 
  Country: None (occurrence: None)
  Receive Date: 20060821
  Receipt Date: 20060809
  Transmission Date: 20061208
  Serious: Yes (Hospitalization)
  Sender: FDA-Public Use
  Company Number: 2006AL001971

PATIENT

DRUGS (1)
  1. PROMETH W/CODEINE COUGH SYRUP (PROMETHAZINE 6.25MG/5ML, CODEINE PHOSPH [Suspect]

REACTIONS (1)
  - FEELING ABNORMAL [None]
